FAERS Safety Report 10252312 (Version 7)
Quarter: 2015Q1

REPORT INFORMATION
  Report Type: Spontaneous
  Country: US (occurrence: US)
  Receive Date: 20140623
  Receipt Date: 20150129
  Transmission Date: 20150720
  Serious: Yes (Life-Threatening, Congenital Anomaly, Other)
  Sender: FDA-Public Use
  Company Number: US-ELI_LILLY_AND_COMPANY-US201406006586

PATIENT
  Age: 1 Day

DRUGS (1)
  1. PROZAC [Suspect]
     Active Substance: FLUOXETINE HYDROCHLORIDE
     Indication: DEPRESSION
     Dosage: 20 MG, UNKNOWN
     Route: 064

REACTIONS (15)
  - Patent ductus arteriosus [Unknown]
  - Right ventricular hypertrophy [Not Recovered/Not Resolved]
  - Right ventricular dysfunction [Not Recovered/Not Resolved]
  - Metabolic acidosis [Unknown]
  - Tricuspid valve incompetence [Not Recovered/Not Resolved]
  - Interruption of aortic arch [Unknown]
  - Atrial septal defect [Not Recovered/Not Resolved]
  - Hypoplastic left heart syndrome [Unknown]
  - Foetal exposure during pregnancy [Recovered/Resolved]
  - Aortic valve atresia [Unknown]
  - Deafness neurosensory [Unknown]
  - Mitral valve atresia [Unknown]
  - Atrial septal defect [Unknown]
  - Pulmonary valve stenosis congenital [Recovered/Resolved]
  - Circulatory collapse [Unknown]

NARRATIVE: CASE EVENT DATE: 20010628
